FAERS Safety Report 25315786 (Version 2)
Quarter: 2025Q2

REPORT INFORMATION
  Report Type: Spontaneous
  Country: JP (occurrence: JP)
  Receive Date: 20250515
  Receipt Date: 20250526
  Transmission Date: 20250717
  Serious: Yes (Hospitalization, Other)
  Sender: AMGEN
  Company Number: JP-ONO-2025JP008058

PATIENT
  Age: 9 Decade
  Sex: Male

DRUGS (2)
  1. PARSABIV [Suspect]
     Active Substance: ETELCALCETIDE HYDROCHLORIDE
     Indication: Hyperparathyroidism secondary
     Route: 010
  2. PARSABIV [Suspect]
     Active Substance: ETELCALCETIDE HYDROCHLORIDE
     Route: 010
     Dates: start: 20250516

REACTIONS (1)
  - Pneumonia [Recovered/Resolved]

NARRATIVE: CASE EVENT DATE: 20250401
